FAERS Safety Report 6558250-4 (Version None)
Quarter: 2010Q1

REPORT INFORMATION
  Report Type: 
  Country: None (occurrence: None)
  Receive Date: 20100129
  Receipt Date: 20100120
  Transmission Date: 20100710
  Serious: Yes (Hospitalization)
  Sender: FDA-Public Use
  Company Number: JP-BRISTOL-MYERS SQUIBB COMPANY-14952170

PATIENT
  Age: 77 Year
  Sex: Female
  Weight: 48 kg

DRUGS (9)
  1. ABILIFY [Suspect]
     Indication: SCHIZOPHRENIA
     Dosage: THERAPHY DATES:6MG QD FROM 3JUL09-6AUG09, INCREASED TO 12MG QD FROM 7AUG09-20OCT09 .
     Route: 048
     Dates: start: 20090703, end: 20091020
  2. AMARYL [Concomitant]
     Dosage: FORMULATION:TABLET,THERAPHY DATES:19SEP2008-ONGOING.
     Dates: start: 20080919
  3. RENIVACE [Concomitant]
     Dosage: FORMULATION:TABLET,THERAPHY DATES:19SEP2008-ONGOING.
     Dates: start: 20080919
  4. ASPIRIN [Concomitant]
     Dosage: FORMULATION:TABLET,THERAPHY DATES:19SEP2008-ONGOING.
     Dates: start: 20080919
  5. RISPERDAL [Concomitant]
     Dosage: FORMULATION:TABLET,THERAPHY DATES:13JAN09-10SEP09 AND 21OCT09 TO ONGOING.
     Dates: start: 20090113
  6. AMOBAN [Concomitant]
     Dosage: FORMULATION: TABLET;THERAPHY DATES 13JAN2009-ONGOING.
     Dates: start: 20090113
  7. BENZALIN [Concomitant]
     Dates: start: 20090113
  8. LEVOTOMIN [Concomitant]
     Dates: start: 20090113
  9. NORVASC [Concomitant]
     Dosage: FORMULATION :TABLET.
     Dates: start: 20090206

REACTIONS (7)
  - BRADYCARDIA [None]
  - CONDITION AGGRAVATED [None]
  - DELUSION [None]
  - HALLUCINATION [None]
  - HYPERTENSION [None]
  - PYREXIA [None]
  - SCHIZOPHRENIA [None]
